FAERS Safety Report 6908550-0 (Version None)
Quarter: 2010Q3

REPORT INFORMATION
  Report Type: 
  Country: None (occurrence: None)
  Receive Date: 20100805
  Receipt Date: 20100728
  Transmission Date: 20110219
  Serious: Yes (Hospitalization)
  Sender: FDA-Public Use
  Company Number: FR-PFIZER INC-2010095061

PATIENT
  Age: 80 Year
  Sex: Female

DRUGS (5)
  1. TAHOR [Suspect]
     Dosage: 1 DF, PER DAY
     Dates: start: 20090101, end: 20100501
  2. COAPROVEL [Concomitant]
     Dosage: UNK
  3. NEXIUM [Concomitant]
     Dosage: UNK
  4. FOSAVANCE [Concomitant]
     Dosage: UNK
  5. CORTANCYL [Concomitant]
     Dosage: UNK
     Dates: start: 20090101

REACTIONS (1)
  - DERMATOMYOSITIS [None]
